FAERS Safety Report 11249896 (Version 1)
Quarter: 2015Q3

REPORT INFORMATION
  Report Type: Spontaneous
  Country: US (occurrence: US)
  Receive Date: 20150708
  Receipt Date: 20150708
  Transmission Date: 20151125
  Serious: Yes (Hospitalization)
  Sender: FDA-Public Use
  Company Number: US-ELI_LILLY_AND_COMPANY-US201010000528

PATIENT
  Age: 72 Year
  Sex: Male
  Weight: 72.02 kg

DRUGS (15)
  1. CARBOPLATIN. [Concomitant]
     Active Substance: CARBOPLATIN
     Indication: BLADDER CANCER
  2. ONDANSETRON [Concomitant]
     Active Substance: ONDANSETRON
     Dates: start: 20100330
  3. GEMCITABINE HYDROCHLORIDE. [Suspect]
     Active Substance: GEMCITABINE HYDROCHLORIDE
     Indication: BLADDER CANCER
  4. ASPIRINE [Concomitant]
     Active Substance: ASPIRIN
  5. FRAGMIN [Concomitant]
     Active Substance: DALTEPARIN SODIUM
     Indication: DEEP VEIN THROMBOSIS
     Dosage: 1000 IU, DAILY (1/D)
     Route: 058
     Dates: start: 20100429
  6. PLAVIX [Concomitant]
     Active Substance: CLOPIDOGREL BISULFATE
  7. NEUPOGEN [Concomitant]
     Active Substance: FILGRASTIM
     Dates: start: 20100330
  8. LACTULOSE. [Concomitant]
     Active Substance: LACTULOSE
     Dates: start: 20100330
  9. ALOXI [Concomitant]
     Active Substance: PALONOSETRON HYDROCHLORIDE
  10. COMPAZINE [Concomitant]
     Active Substance: PROCHLORPERAZINE MALEATE
     Dates: start: 20100330
  11. ARANESP [Concomitant]
     Active Substance: DARBEPOETIN ALFA
     Dates: start: 20100530
  12. METOPROLOL [Concomitant]
     Active Substance: METOPROLOL
     Dates: start: 20100401
  13. MIRALAX [Concomitant]
     Active Substance: POLYETHYLENE GLYCOL 3350
     Dates: start: 20100330
  14. DEXAMETHASONE. [Concomitant]
     Active Substance: DEXAMETHASONE
     Dates: start: 20100330
  15. MEGESTROL [Concomitant]
     Active Substance: MEGESTROL
     Dates: start: 20100624

REACTIONS (6)
  - Anaemia [Unknown]
  - Thrombocytopenia [Unknown]
  - Renal impairment [Recovered/Resolved]
  - Sepsis [Unknown]
  - Neutropenia [Unknown]
  - Hypotension [Recovered/Resolved]

NARRATIVE: CASE EVENT DATE: 20100810
